FAERS Safety Report 16994594 (Version 1)
Quarter: 2019Q4

REPORT INFORMATION
  Report Type: Spontaneous
  Country: US (occurrence: US)
  Receive Date: 20191105
  Receipt Date: 20191105
  Transmission Date: 20200122
  Serious: Yes (Life-Threatening, Hospitalization, Other)
  Sender: FDA-Public Use
  Company Number: US-SCIEGEN PHARMACEUTICALS INC-2019SCILIT00334

PATIENT
  Age: 68 Year
  Sex: Female

DRUGS (5)
  1. FENTANYL. [Suspect]
     Active Substance: FENTANYL
  2. TACROLIMUS. [Suspect]
     Active Substance: TACROLIMUS
  3. PREDNISONE. [Concomitant]
     Active Substance: PREDNISONE
  4. QUETIAPINE. [Suspect]
     Active Substance: QUETIAPINE
  5. LORAZEPAM. [Interacting]
     Active Substance: LORAZEPAM

REACTIONS (2)
  - Serotonin syndrome [Recovered/Resolved]
  - Drug interaction [Recovered/Resolved]
